FAERS Safety Report 4699388-6 (Version None)
Quarter: 2005Q2

REPORT INFORMATION
  Report Type: 
  Country: None (occurrence: None)
  Receive Date: 20050624
  Receipt Date: 20050210
  Transmission Date: 20051028
  Serious: Yes (Hospitalization)
  Sender: FDA-Public Use
  Company Number: US-MERCK-0502USA01525

PATIENT
  Age: 76 Year
  Sex: Female
  Weight: 80 kg

DRUGS (8)
  1. VIOXX [Suspect]
     Indication: ARTHRALGIA
     Route: 048
     Dates: start: 20020101, end: 20040303
  2. VIOXX [Suspect]
     Indication: JOINT INJURY
     Route: 048
     Dates: start: 20020101, end: 20040303
  3. CELEBREX [Concomitant]
     Indication: ARTHRALGIA
     Route: 048
  4. CELEBREX [Concomitant]
     Indication: OSTEOARTHRITIS
     Route: 048
  5. METOPROLOL [Concomitant]
     Route: 048
  6. LASIX [Concomitant]
     Route: 048
  7. NEXIUM [Concomitant]
     Route: 048
  8. ALPRAZOLAM [Concomitant]
     Indication: ANXIETY
     Route: 065
     Dates: start: 20010514

REACTIONS (41)
  - ACUTE MYOCARDIAL INFARCTION [None]
  - ANGINA UNSTABLE [None]
  - ASTHMA [None]
  - BACK PAIN [None]
  - BALANCE DISORDER [None]
  - BLOOD HOMOCYSTEINE INCREASED [None]
  - CARDIAC DISORDER [None]
  - CARDIAC FAILURE [None]
  - CARDIAC FAILURE CONGESTIVE [None]
  - CARDIOVASCULAR DISORDER [None]
  - CHEST PAIN [None]
  - CONCUSSION [None]
  - CONDITION AGGRAVATED [None]
  - CORONARY ARTERY DISEASE [None]
  - CORONARY ARTERY STENOSIS [None]
  - DILATATION ATRIAL [None]
  - DISEASE RECURRENCE [None]
  - FALL [None]
  - FRACTURE [None]
  - GAIT DISTURBANCE [None]
  - GASTROOESOPHAGEAL REFLUX DISEASE [None]
  - GOUT [None]
  - HYPERTENSION [None]
  - HYPOTENSION [None]
  - INJURY [None]
  - INNER EAR DISORDER [None]
  - ISCHAEMIC CARDIOMYOPATHY [None]
  - JOINT DISLOCATION [None]
  - JOINT INJURY [None]
  - MENISCUS LESION [None]
  - MITRAL VALVE INCOMPETENCE [None]
  - MULTI-ORGAN DISORDER [None]
  - NECK PAIN [None]
  - OSTEOCHONDROSIS [None]
  - PAIN [None]
  - POST CONCUSSION SYNDROME [None]
  - PULMONARY HYPERTENSION [None]
  - RADICULOPATHY [None]
  - SQUAMOUS CELL CARCINOMA [None]
  - VENTRICULAR HYPERTROPHY [None]
  - VERTIGO [None]
